FAERS Safety Report 25791029 (Version 2)
Quarter: 2025Q3

REPORT INFORMATION
  Report Type: Spontaneous
  Country: GB (occurrence: GB)
  Receive Date: 20250911
  Receipt Date: 20250918
  Transmission Date: 20251020
  Serious: Yes (Life-Threatening, Other)
  Sender: MYLAN
  Company Number: None

PATIENT
  Age: 30 Year
  Sex: Female
  Weight: 80 kg

DRUGS (8)
  1. DOXYCYCLINE [Suspect]
     Active Substance: DOXYCYCLINE
     Indication: Acne
     Dates: start: 20250901, end: 20250903
  2. DOXYCYCLINE [Suspect]
     Active Substance: DOXYCYCLINE
     Route: 065
     Dates: start: 20250901, end: 20250903
  3. DOXYCYCLINE [Suspect]
     Active Substance: DOXYCYCLINE
     Route: 065
     Dates: start: 20250901, end: 20250903
  4. DOXYCYCLINE [Suspect]
     Active Substance: DOXYCYCLINE
     Dates: start: 20250901, end: 20250903
  5. VENLAFAXINE [Concomitant]
     Active Substance: VENLAFAXINE HYDROCHLORIDE
  6. VENLAFAXINE [Concomitant]
     Active Substance: VENLAFAXINE HYDROCHLORIDE
     Route: 065
  7. VENLAFAXINE [Concomitant]
     Active Substance: VENLAFAXINE HYDROCHLORIDE
     Route: 065
  8. VENLAFAXINE [Concomitant]
     Active Substance: VENLAFAXINE HYDROCHLORIDE

REACTIONS (9)
  - Suicidal ideation [Recovered/Resolved]
  - Major depression [Recovering/Resolving]
  - Anxiety [Recovering/Resolving]
  - Intracranial pressure increased [Recovering/Resolving]
  - Mania [Recovering/Resolving]
  - Psychotic disorder [Recovering/Resolving]
  - Blepharospasm [Recovering/Resolving]
  - Headache [Recovering/Resolving]
  - Intrusive thoughts [Recovering/Resolving]

NARRATIVE: CASE EVENT DATE: 20250903
